FAERS Safety Report 10144937 (Version 1)
Quarter: 2014Q2

REPORT INFORMATION
  Report Type: Spontaneous
  Country: US (occurrence: US)
  Receive Date: 20140430
  Receipt Date: 20140430
  Transmission Date: 20141212
  Serious: No
  Sender: FDA-Public Use
  Company Number: US-SA-2014SA034637

PATIENT
  Age: 64 Year
  Sex: Male

DRUGS (14)
  1. OMEPRAZOLE [Concomitant]
     Dosage: STRENGTH 20 MG
     Route: 048
     Dates: start: 20100203
  2. SIMVASTATIN [Concomitant]
     Dosage: STRENGTH 20 MG
     Route: 048
  3. SPIRONOLACTONE [Concomitant]
     Dosage: STRENGTH 25 MG
     Route: 048
     Dates: start: 20120502
  4. COUMADIN [Concomitant]
     Dosage: STRENGTH 2.5 MG
     Route: 048
  5. TIKOSYN [Concomitant]
     Dosage: STRENGTH 500 MCG
     Route: 048
  6. DEMEROL [Suspect]
     Indication: PRODUCT USED FOR UNKNOWN INDICATION
     Route: 065
  7. PENICILLIN NOS [Suspect]
     Indication: PRODUCT USED FOR UNKNOWN INDICATION
     Route: 065
  8. ASPIRIN [Concomitant]
     Route: 048
  9. CARVEDILOL [Concomitant]
     Dosage: TAKE ONE TABLET  TWICE DAILY WITH MEALS FOR TWO THREE YEARS.
     Route: 048
  10. ERGOCALCIFEROL [Concomitant]
     Dosage: DOSE:50000 UNIT(S)
     Route: 048
  11. FUROSEMIDE [Concomitant]
     Dosage: TAKE ONE TABLET DAILY
     Route: 048
  12. LEVOTHYROXINE SODIUM [Concomitant]
     Dosage: TAKE ONE TABLET BY MOUTH EVERY DAY
     Route: 048
     Dates: start: 20130122
  13. LISINOPRIL [Concomitant]
     Dosage: STRENGTH 5 MG
     Route: 048
  14. NITROSTAT [Concomitant]
     Dosage: PLACE ONE TABLET AS DIRECTED PRN CHEST PAIN Q 5 MINUTES X3 THEN GO DIRECTLY TO ER IF PAIN PERSISTS.
     Route: 060
     Dates: start: 20131217

REACTIONS (1)
  - Drug hypersensitivity [Unknown]
